FAERS Safety Report 7640942-7 (Version None)
Quarter: 2011Q3

REPORT INFORMATION
  Report Type: 
  Country: None (occurrence: None)
  Receive Date: 20110728
  Receipt Date: 20110725
  Transmission Date: 20111222
  Serious: Yes (Hospitalization, Other)
  Sender: FDA-Public Use
  Company Number: DE-ABBOTT-11P-062-0733535-00

PATIENT
  Sex: Male
  Weight: 60 kg

DRUGS (6)
  1. VOLORON [Concomitant]
     Indication: PRODUCT USED FOR UNKNOWN INDICATION
  2. MIRTAZIPIN [Concomitant]
     Indication: PRODUCT USED FOR UNKNOWN INDICATION
     Dosage: 15 MG DAILY
  3. TILIDIN [Concomitant]
     Indication: PRODUCT USED FOR UNKNOWN INDICATION
     Dosage: 1 IN 1 DAYS
  4. ACETAMINOPHEN [Concomitant]
     Indication: PRODUCT USED FOR UNKNOWN INDICATION
  5. HUMIRA [Suspect]
     Indication: CROHN'S DISEASE
     Route: 058
     Dates: start: 20091030
  6. FENISTIL [Concomitant]
     Indication: PRODUCT USED FOR UNKNOWN INDICATION

REACTIONS (6)
  - CROHN'S DISEASE [None]
  - CHOLELITHIASIS [None]
  - ABDOMINAL WALL ABSCESS [None]
  - ENTEROCUTANEOUS FISTULA [None]
  - SPLENOMEGALY [None]
  - ABDOMINAL ABSCESS [None]
